FAERS Safety Report 4361125-2 (Version None)
Quarter: 2004Q2

REPORT INFORMATION
  Report Type: 
  Country: None (occurrence: None)
  Receive Date: 20040511
  Receipt Date: 20040202
  Transmission Date: 20050107
  Serious: Yes (Hospitalization)
  Sender: FDA-Public Use
  Company Number: SUS1-2004-00057

PATIENT
  Age: 21 Year
  Sex: Male

DRUGS (3)
  1. ADDERALL 10 [Suspect]
  2. ADDERALL XR (AMPHETAMINE ASPARTATE, AMPHETAMINE SULFATE, DEXTROAMPHETA [Suspect]
     Dates: end: 20030916
  3. INHALER NOS [Concomitant]

REACTIONS (4)
  - DEPRESSION [None]
  - DRUG ABUSER [None]
  - PANIC ATTACK [None]
  - PSYCHOTIC DISORDER [None]
